FAERS Safety Report 9969411 (Version 2)
Quarter: 2014Q1

REPORT INFORMATION
  Report Type: Report from Study
  Country: DE (occurrence: DE)
  Receive Date: 20140306
  Receipt Date: 20140306
  Transmission Date: 20141002
  Serious: Yes (Other)
  Sender: FDA-Public Use
  Company Number: DE-ROCHE-1344045

PATIENT
  Age: 77 Year
  Sex: Male
  Weight: 97 kg

DRUGS (8)
  1. BEVACIZUMAB [Suspect]
     Indication: NEOPLASM MALIGNANT
     Route: 065
     Dates: start: 20140131
  2. CAPECITABINE [Suspect]
     Indication: PRODUCT USED FOR UNKNOWN INDICATION
     Route: 065
  3. INSULIN [Concomitant]
     Indication: DIABETES MELLITUS
  4. SIMVASTATIN [Concomitant]
     Route: 065
  5. RAMILICH [Concomitant]
     Route: 065
  6. CARVEDILOL [Concomitant]
     Route: 065
  7. L-THYROXIN 75 [Concomitant]
     Route: 065
  8. ASS100 [Concomitant]
     Route: 065

REACTIONS (2)
  - Ileus [Recovering/Resolving]
  - Incisional hernia, obstructive [Unknown]
